FAERS Safety Report 5727678-4 (Version None)
Quarter: 2008Q2

REPORT INFORMATION
  Report Type: 
  Country: None (occurrence: None)
  Receive Date: 20080505
  Receipt Date: 20080425
  Transmission Date: 20081010
  Serious: Yes (Death)
  Sender: FDA-Public Use
  Company Number: KR-JNJFOC-20070603055

PATIENT
  Age: 10 Year
  Sex: Male
  Weight: 44 kg

DRUGS (4)
  1. TYLENOL (CAPLET) [Suspect]
  2. TYLENOL (CAPLET) [Suspect]
     Indication: ACCIDENTAL EXPOSURE
     Dosage: SMALL QUANTITY MINGLED WITH PRESCRIBED MEDICATIONS FROM DISPENSING PROCESS WITH MORTAR AND PESTLE
  3. ANISTIN [Suspect]
     Indication: DYSPEPSIA
  4. LACTEOL [Suspect]
     Indication: DYSPEPSIA

REACTIONS (3)
  - ACCIDENTAL EXPOSURE [None]
  - SUDDEN CARDIAC DEATH [None]
  - WRONG TECHNIQUE IN DRUG USAGE PROCESS [None]
